FAERS Safety Report 23076271 (Version 1)
Quarter: 2023Q4

REPORT INFORMATION
  Report Type: Report from Study
  Country: ZA (occurrence: ZA)
  Receive Date: 20231017
  Receipt Date: 20231017
  Transmission Date: 20240110
  Serious: Yes (Other)
  Sender: FDA-Public Use
  Company Number: ZA-002147023-NVSC2023ZA214141

PATIENT
  Age: 16 Year
  Sex: Female

DRUGS (1)
  1. FINGOLIMOD HYDROCHLORIDE [Suspect]
     Active Substance: FINGOLIMOD HYDROCHLORIDE
     Indication: Relapsing-remitting multiple sclerosis
     Dosage: 0.5 MG, QD
     Route: 048
     Dates: start: 20230406

REACTIONS (6)
  - Optic atrophy [Unknown]
  - Gaze palsy [Unknown]
  - Eyelid ptosis [Unknown]
  - Dyskinesia [Unknown]
  - Rash [Unknown]
  - Arthropod bite [Unknown]
